FAERS Safety Report 6183410-4 (Version None)
Quarter: 2009Q2

REPORT INFORMATION
  Report Type: 
  Country: None (occurrence: None)
  Receive Date: 20090507
  Receipt Date: 20090428
  Transmission Date: 20091009
  Serious: Yes (Disabling)
  Sender: FDA-Public Use
  Company Number: US-MERCK-0904USA04425

PATIENT
  Age: 51 Year
  Sex: Female

DRUGS (2)
  1. SINGULAIR [Suspect]
     Indication: SEASONAL ALLERGY
     Route: 048
     Dates: start: 20060101
  2. ANTIMICROBIAL (UNSPECIFIED) [Concomitant]
     Route: 065

REACTIONS (6)
  - BALANCE DISORDER [None]
  - DIZZINESS [None]
  - DYSARTHRIA [None]
  - GAIT DISTURBANCE [None]
  - MEMORY IMPAIRMENT [None]
  - NEUROLOGICAL SYMPTOM [None]
